FAERS Safety Report 25894406 (Version 4)
Quarter: 2025Q4

REPORT INFORMATION
  Report Type: Spontaneous
  Country: US (occurrence: US)
  Receive Date: 20251008
  Receipt Date: 20251208
  Transmission Date: 20260118
  Serious: Yes (Death, Other)
  Sender: ALEXION PHARMACEUTICALS
  Company Number: US-AstraZeneca-CH-00962723A

PATIENT
  Sex: Female

DRUGS (1)
  1. SOLIRIS [Suspect]
     Active Substance: ECULIZUMAB
     Dosage: UNK
     Route: 065

REACTIONS (2)
  - Cardiac arrest [Fatal]
  - Critical illness [Fatal]
